FAERS Safety Report 6344220-8 (Version None)
Quarter: 2009Q3

REPORT INFORMATION
  Report Type: 
  Country: None (occurrence: None)
  Receive Date: 20090908
  Receipt Date: 20090824
  Transmission Date: 20100115
  Serious: Yes (Hospitalization)
  Sender: FDA-Public Use
  Company Number: AT-PFIZER INC-2009259690

PATIENT
  Age: 80 Year

DRUGS (16)
  1. TRESLEEN [Suspect]
     Route: 048
  2. FUROHEXAL [Suspect]
     Dosage: 40 MG, 2X/DAY
     Route: 048
  3. ASPIRIN [Concomitant]
     Dosage: 100 MG, UNK
     Route: 048
  4. CLYSMOL [Concomitant]
  5. BISOPROLOL FUMARATE [Concomitant]
     Dosage: 1.25 MG, 1X/DAY
     Route: 048
  6. DANCOR [Concomitant]
     Dosage: 10 MG, 2X/DAY
     Route: 048
  7. ENAC [Concomitant]
     Dosage: 2.5 MG, 2X/DAY
     Route: 048
  8. EUTHYROX [Concomitant]
     Dosage: 75 UG, UNK
  9. HALCION [Concomitant]
     Dosage: 0.25 MG, UNK
  10. METOGASTRON [Concomitant]
     Dosage: 4 MG/ML, UNK
     Route: 048
  11. NITROLINGUAL [Concomitant]
     Dosage: 0.8 MG, UNK
  12. NOVALGIN [Concomitant]
  13. OMEPRAZOLE [Concomitant]
     Dosage: 20 MG, UNK
  14. PLAVIX [Concomitant]
     Dosage: 75 MG, UNK
     Route: 048
  15. SIMVASTATIN [Concomitant]
     Dosage: 40 MG, UNK
  16. SPIRONO COMP ^GENERICON^ [Concomitant]
     Dosage: 50 MG, UNK
     Route: 048

REACTIONS (2)
  - GENERAL PHYSICAL HEALTH DETERIORATION [None]
  - HYPONATRAEMIA [None]
